FAERS Safety Report 17233700 (Version 2)
Quarter: 2020Q2

REPORT INFORMATION
  Report Type: Report from Study
  Country: None (occurrence: US)
  Receive Date: 20200105
  Receipt Date: 20200512
  Transmission Date: 20200713
  Serious: Yes (Hospitalization, Other)
  Sender: FDA-Public Use
  Company Number: US-ABBVIE-19K-163-2955708-00

PATIENT
  Sex: Female

DRUGS (2)
  1. HUMIRA [Suspect]
     Active Substance: ADALIMUMAB
     Indication: RHEUMATOID ARTHRITIS
     Route: 058
  2. HUMIRA [Suspect]
     Active Substance: ADALIMUMAB
     Route: 058
     Dates: start: 202001

REACTIONS (9)
  - Gait inability [Unknown]
  - Inflammatory marker increased [Not Recovered/Not Resolved]
  - Pain in extremity [Unknown]
  - Hospitalisation [Unknown]
  - Back pain [Unknown]
  - Chest pain [Unknown]
  - Pulmonary oedema [Unknown]
  - Cough [Unknown]
  - Sneezing [Unknown]
